FAERS Safety Report 24231272 (Version 2)
Quarter: 2025Q1

REPORT INFORMATION
  Report Type: Other
  Country: CA (occurrence: CA)
  Receive Date: 20240821
  Receipt Date: 20250310
  Transmission Date: 20250408
  Serious: Yes (Hospitalization, Other)
  Sender: APOTEX
  Company Number: CA-APOTEX-2024AP009338

PATIENT
  Age: 9 Year
  Sex: Male

DRUGS (24)
  1. ARIPIPRAZOLE [Interacting]
     Active Substance: ARIPIPRAZOLE
     Indication: Anxiety
     Route: 065
  2. ARIPIPRAZOLE [Interacting]
     Active Substance: ARIPIPRAZOLE
     Indication: Abnormal behaviour
  3. LINEZOLID [Interacting]
     Active Substance: LINEZOLID
     Indication: Anti-infective therapy
     Route: 048
  4. LINEZOLID [Interacting]
     Active Substance: LINEZOLID
     Indication: Mycobacterium fortuitum infection
     Route: 065
  5. LINEZOLID [Interacting]
     Active Substance: LINEZOLID
     Indication: Mycobacterial peritonitis
  6. METHYLPHENIDATE [Interacting]
     Active Substance: METHYLPHENIDATE
     Indication: Anxiety
     Route: 065
  7. METHYLPHENIDATE [Interacting]
     Active Substance: METHYLPHENIDATE
     Indication: Abnormal behaviour
  8. MOXIFLOXACIN [Interacting]
     Active Substance: MOXIFLOXACIN
     Indication: Anti-infective therapy
     Route: 048
  9. PREDNISONE [Interacting]
     Active Substance: PREDNISONE
     Indication: Prophylaxis
     Route: 065
  10. PREDNISONE [Interacting]
     Active Substance: PREDNISONE
     Indication: Donor specific antibody present
  11. SERTRALINE [Interacting]
     Active Substance: SERTRALINE HYDROCHLORIDE
     Indication: Anxiety
     Route: 065
  12. SERTRALINE [Interacting]
     Active Substance: SERTRALINE HYDROCHLORIDE
     Indication: Abnormal behaviour
  13. TACROLIMUS [Interacting]
     Active Substance: TACROLIMUS
     Indication: Prophylaxis
     Route: 065
  14. TACROLIMUS [Interacting]
     Active Substance: TACROLIMUS
     Indication: Immunosuppression
  15. TACROLIMUS [Interacting]
     Active Substance: TACROLIMUS
     Indication: Donor specific antibody present
  16. AMIKACIN [Concomitant]
     Active Substance: AMIKACIN
     Indication: Anti-infective therapy
     Route: 042
  17. CEFTAZIDIME [Concomitant]
     Active Substance: CEFTAZIDIME
     Indication: Anti-infective therapy
     Route: 033
  18. CEFTAZIDIME [Concomitant]
     Active Substance: CEFTAZIDIME
     Indication: Peritonitis
  19. CIPROFLOXACIN [Concomitant]
     Active Substance: CIPROFLOXACIN
     Indication: Anti-infective therapy
     Route: 048
  20. CLARITHROMYCIN [Concomitant]
     Active Substance: CLARITHROMYCIN
     Indication: Product used for unknown indication
     Route: 065
  21. DOXYCYCLINE [Concomitant]
     Active Substance: DOXYCYCLINE
     Indication: Product used for unknown indication
     Route: 065
  22. FLUCONAZOLE [Concomitant]
     Active Substance: FLUCONAZOLE
     Indication: Antifungal prophylaxis
     Route: 048
  23. IMIPENEM [Concomitant]
     Active Substance: IMIPENEM
     Indication: Anti-infective therapy
     Route: 042
  24. TRIMETROPINA SULFAMETOXAZOL [Concomitant]
     Indication: Mycobacterium fortuitum infection
     Route: 048

REACTIONS (5)
  - Drug interaction [Recovered/Resolved]
  - Mycobacterial peritonitis [Recovered/Resolved]
  - Mycobacterium fortuitum infection [Recovered/Resolved]
  - Off label use [Recovered/Resolved]
  - Electrocardiogram QT prolonged [Recovered/Resolved]
